FAERS Safety Report 25774476 (Version 2)
Quarter: 2025Q3

REPORT INFORMATION
  Report Type: Spontaneous
  Country: US (occurrence: US)
  Receive Date: 20250908
  Receipt Date: 20250918
  Transmission Date: 20251020
  Serious: No
  Sender: TEIKOKU
  Company Number: US-Teikoku Pharma USA-TPU2022-00305

PATIENT
  Age: 63 Year
  Sex: Female
  Weight: 71.21 kg

DRUGS (7)
  1. LIDOCAINE PATCH [Suspect]
     Active Substance: LIDOCAINE
     Indication: Arthralgia
  2. LIDOCAINE PATCH [Suspect]
     Active Substance: LIDOCAINE
     Indication: Back pain
  3. LIDOCAINE PATCH [Suspect]
     Active Substance: LIDOCAINE
     Indication: Arthralgia
  4. LIDOCAINE PATCH [Suspect]
     Active Substance: LIDOCAINE
     Indication: Neck pain
  5. LIDODERM [Suspect]
     Active Substance: LIDOCAINE
     Indication: Arthralgia
  6. LIDODERM [Suspect]
     Active Substance: LIDOCAINE
     Indication: Back pain
  7. LIDODERM [Suspect]
     Active Substance: LIDOCAINE
     Indication: Sacroiliac joint dysfunction

REACTIONS (7)
  - Rash [Unknown]
  - Oropharyngeal pain [Recovered/Resolved]
  - Eye pruritus [Unknown]
  - Road traffic accident [Unknown]
  - Neck pain [Not Recovered/Not Resolved]
  - Hypersensitivity [Unknown]
  - Visual impairment [Not Recovered/Not Resolved]

NARRATIVE: CASE EVENT DATE: 20211201
